FAERS Safety Report 10254806 (Version 1)
Quarter: 2014Q2

REPORT INFORMATION
  Report Type: Spontaneous
  Country: US (occurrence: None)
  Receive Date: 20140620
  Receipt Date: 20140620
  Transmission Date: 20141212
  Serious: No
  Sender: FDA-Public Use
  Company Number: None

PATIENT
  Age: 76 Year
  Sex: Female
  Weight: 77.11 kg

DRUGS (1)
  1. IMIQUIMOD [Suspect]
     Indication: SKIN PAPILLOMA
     Dosage: 1 PACKET ONCE DAILY APPLIED TO A SURFACE, USUALLY THE SKIN
     Route: 058
     Dates: start: 20140602, end: 20140612

REACTIONS (6)
  - Malaise [None]
  - Nausea [None]
  - Myalgia [None]
  - Dizziness [None]
  - Heart rate abnormal [None]
  - Decreased activity [None]
